FAERS Safety Report 5947069-0 (Version None)
Quarter: 2008Q4

REPORT INFORMATION
  Report Type: 
  Country: None (occurrence: None)
  Receive Date: 20081106
  Receipt Date: 20081022
  Transmission Date: 20090506
  Serious: Yes (Hospitalization, Other)
  Sender: FDA-Public Use
  Company Number: 2008BI028267

PATIENT
  Age: 32 Year
  Sex: Female

DRUGS (4)
  1. TYSABRI [Suspect]
     Indication: MULTIPLE SCLEROSIS
     Dosage: 300 MG; QM; IV
     Route: 042
     Dates: start: 20070227, end: 20080910
  2. . [Concomitant]
  3. REBIF (PREV.) [Concomitant]
  4. COPAXONE (PREV.) [Concomitant]

REACTIONS (5)
  - CD4 LYMPHOCYTES DECREASED [None]
  - CONVULSION [None]
  - HEMIPARESIS [None]
  - MENINGITIS ASEPTIC [None]
  - MENINGITIS VIRAL [None]
